FAERS Safety Report 8378106-4 (Version None)
Quarter: 2012Q2

REPORT INFORMATION
  Report Type: 
  Country: None (occurrence: None)
  Receive Date: 20120522
  Receipt Date: 20120510
  Transmission Date: 20120825
  Serious: Yes (Hospitalization, Other)
  Sender: FDA-Public Use
  Company Number: US-ACTELION-A-US2012-63761

PATIENT

DRUGS (6)
  1. COUMADIN [Concomitant]
  2. AMIODARONE HCL [Concomitant]
  3. OXYGEN [Concomitant]
  4. TRACLEER [Suspect]
     Indication: PULMONARY ARTERIAL HYPERTENSION
     Dosage: UNK MG, UNK
     Route: 048
     Dates: start: 20090702
  5. REVATIO [Concomitant]
  6. CALCIUM CHANNEL BLOCKERS [Concomitant]

REACTIONS (8)
  - ATRIAL FIBRILLATION [None]
  - CEREBROVASCULAR ACCIDENT [None]
  - MYOCARDIAL INFARCTION [None]
  - CARDIAC PACEMAKER INSERTION [None]
  - SYNCOPE [None]
  - EYE EXCISION [None]
  - BLINDNESS [None]
  - CARDIOVERSION [None]
